FAERS Safety Report 25024057 (Version 1)
Quarter: 2025Q1

REPORT INFORMATION
  Report Type: Spontaneous
  Country: US (occurrence: None)
  Receive Date: 20250228
  Receipt Date: 20250228
  Transmission Date: 20250408
  Serious: Yes (Life-Threatening, Hospitalization)
  Sender: FDA-CTU
  Company Number: None

PATIENT
  Age: 87 Year
  Sex: Male
  Weight: 82 kg

DRUGS (1)
  1. RIVAROXABAN [Suspect]
     Active Substance: RIVAROXABAN
     Indication: Atrial fibrillation
     Dosage: FREQUENCY : DAILY;?
     Route: 048
     Dates: start: 20240716

REACTIONS (6)
  - Subdural haemorrhage [None]
  - Fall [None]
  - Head injury [None]
  - General physical health deterioration [None]
  - Nervousness [None]
  - Rib fracture [None]

NARRATIVE: CASE EVENT DATE: 20240721
